FAERS Safety Report 9537941 (Version 1)
Quarter: 2013Q3

REPORT INFORMATION
  Report Type: Spontaneous
  Country: IT (occurrence: IT)
  Receive Date: 20130919
  Receipt Date: 20130919
  Transmission Date: 20140515
  Serious: Yes (Other)
  Sender: FDA-Public Use
  Company Number: PHHY2013IT102296

PATIENT
  Age: 67 Year
  Sex: Female

DRUGS (2)
  1. METFORMIN [Suspect]
     Dosage: 1000 MG, QD
     Route: 048
     Dates: start: 20130101, end: 20130809
  2. LEVOFLOXACIN [Interacting]
     Dosage: 500 MG, QD
     Route: 048
     Dates: start: 20130802, end: 20130809

REACTIONS (1)
  - Blood glucose increased [Recovering/Resolving]
